FAERS Safety Report 4356573-0 (Version None)
Quarter: 2004Q2

REPORT INFORMATION
  Report Type: 
  Country: None (occurrence: None)
  Receive Date: 20040507
  Receipt Date: 20040426
  Transmission Date: 20050107
  Serious: Yes (Hospitalization)
  Sender: FDA-Public Use
  Company Number: US-JNJFOC-20040405540

PATIENT
  Age: 72 Year
  Sex: Male
  Weight: 95.2554 kg

DRUGS (15)
  1. INFLIXIMAB (INFLIXIMAB, RECOMBINANT) LYOPHILIZED POWDER [Suspect]
     Indication: RHEUMATOID ARTHRITIS
     Dosage: , 1 IN 6 WEEK, INTRAVENOUS
     Route: 042
     Dates: start: 20000203
  2. FUROSEMIDE [Concomitant]
  3. SIMVASTATIN [Concomitant]
  4. LISINOPRIL [Concomitant]
  5. ISOSORBIDE DINITRATE [Concomitant]
  6. RABEPRAZOLE SODIUM [Concomitant]
  7. FELODIPINE [Concomitant]
  8. ASPIRIN [Concomitant]
  9. FOLIC ACID [Concomitant]
  10. POTASSIUM (POTASSIUM) [Concomitant]
  11. METHOTREXATE [Concomitant]
  12. CALCIUM (CALCIUM) [Concomitant]
  13. VITAMIN C (ASCORBIC ACID) [Concomitant]
  14. MULTIVITAMIN (MULTIVITAMINS) [Concomitant]
  15. CLOPIDOGREL BISULFATE (CLOPIDOGREL) [Concomitant]

REACTIONS (4)
  - AGE INDETERMINATE MYOCARDIAL INFARCTION [None]
  - ANGINA PECTORIS [None]
  - CORONARY ARTERY RESTENOSIS [None]
  - SINUS BRADYCARDIA [None]
